FAERS Safety Report 5293287-7 (Version None)
Quarter: 2007Q2

REPORT INFORMATION
  Report Type: 
  Country: None (occurrence: None)
  Receive Date: 20070411
  Receipt Date: 20070330
  Transmission Date: 20071010
  Serious: Yes (Hospitalization, Other)
  Sender: FDA-Public Use
  Company Number: US-ELI_LILLY_AND_COMPANY-US200703005116

PATIENT
  Age: 55 Year
  Sex: Female

DRUGS (8)
  1. FORTEO [Suspect]
     Dosage: UNK, UNK
     Dates: start: 20040101, end: 20040801
  2. FORTEO [Suspect]
     Dates: start: 20070120, end: 20070217
  3. FORTEO [Suspect]
     Dates: start: 20070319
  4. OXYCODONE HCL [Concomitant]
     Dosage: 5 MG, EACH MORNING
  5. OXYCODONE HCL [Concomitant]
     Dosage: UNK, AS NEEDED
  6. TYLENOL /USA/ [Concomitant]
  7. VALIUM [Concomitant]
     Dosage: 2.5 MG, UNK
  8. CALCIUM CARBONATE [Concomitant]

REACTIONS (4)
  - FALL [None]
  - HEADACHE [None]
  - INJECTION SITE BRUISING [None]
  - WRIST FRACTURE [None]
